FAERS Safety Report 16725511 (Version 1)
Quarter: 2019Q4

REPORT INFORMATION
  Report Type: Spontaneous
  Country: US (occurrence: US)
  Receive Date: 20190820
  Receipt Date: 20190820
  Transmission Date: 20200122
  Serious: Yes (Hospitalization, Disabling, Other)
  Sender: FDA-Public Use
  Company Number: None

PATIENT
  Age: 65 Year
  Sex: Male
  Weight: 88.2 kg

DRUGS (9)
  1. ZYRTEC [Concomitant]
     Active Substance: CETIRIZINE HYDROCHLORIDE
  2. TRAMADOL. [Concomitant]
     Active Substance: TRAMADOL
  3. LOSARTAN. [Suspect]
     Active Substance: LOSARTAN
     Indication: HYPERTENSION
     Dosage: ?          QUANTITY:1 TABLET(S);?
     Route: 048
     Dates: start: 20140712, end: 20180724
  4. BABY ASPIRIN [Concomitant]
     Active Substance: ASPIRIN
  5. SLEEP APNEA [Concomitant]
  6. SERTRALINE [Concomitant]
     Active Substance: SERTRALINE HYDROCHLORIDE
  7. VITAMIN D [Concomitant]
     Active Substance: VITAMIN D NOS
  8. ROSARVASTATINE [Concomitant]
  9. FLO-NASE [Concomitant]

REACTIONS (6)
  - Urinary cystectomy [None]
  - Renal cancer [None]
  - Lymphadenectomy [None]
  - Bladder cancer [None]
  - Cerebrovascular accident [None]
  - Prostatic operation [None]

NARRATIVE: CASE EVENT DATE: 20160709
